FAERS Safety Report 8066839 (Version 4)
Quarter: 2013Q4

REPORT INFORMATION
  Report Type: Spontaneous
  Country: JP (occurrence: JP)
  Receive Date: 20110803
  Receipt Date: 20131016
  Transmission Date: 20140711
  Serious: Yes (Life-Threatening, Hospitalization, Other)
  Sender: FDA-Public Use
  Company Number: JP-PFIZER INC-2011175452

PATIENT
  Age: 16 Year
  Sex: Female
  Weight: 61.3 kg

DRUGS (5)
  1. SOLU-MEDROL [Suspect]
     Dosage: 1000 MG, UNK
     Route: 041
     Dates: start: 20110715, end: 20110801
  2. CELLCEPT [Concomitant]
     Indication: MIXED CONNECTIVE TISSUE DISEASE
     Dosage: 1500 G/DAY
     Route: 048
     Dates: start: 20070627
  3. PREDNISOLONE [Concomitant]
     Indication: MIXED CONNECTIVE TISSUE DISEASE
     Dosage: 15 MG, 1X/DAY
     Route: 048
     Dates: start: 20070627
  4. CINAL [Concomitant]
     Indication: MIXED CONNECTIVE TISSUE DISEASE
     Dosage: 1 G, 1X/DAY
     Route: 048
  5. TEPRENONE [Concomitant]
     Indication: PROPHYLAXIS AGAINST GASTROINTESTINAL ULCER
     Dosage: 150 G/DAY
     Route: 048
     Dates: start: 20100423

REACTIONS (1)
  - Anaphylactic shock [Recovered/Resolved]
